FAERS Safety Report 9788809 (Version 3)
Quarter: 2014Q1

REPORT INFORMATION
  Report Type: Spontaneous
  Country: IT (occurrence: IT)
  Receive Date: 20131230
  Receipt Date: 20140220
  Transmission Date: 20141002
  Serious: Yes (Hospitalization)
  Sender: FDA-Public Use
  Company Number: IT-NOVOPROD-396470

PATIENT
  Age: 64 Year
  Sex: Male

DRUGS (11)
  1. LEVEMIR FLEXPEN [Suspect]
     Indication: DIABETES MELLITUS
     Dosage: 40 U, QD
     Route: 058
     Dates: start: 20130101
  2. LEVEMIR FLEXPEN [Suspect]
     Dosage: UNKNOWN
     Route: 058
  3. APIDRA [Suspect]
     Indication: DIABETES MELLITUS
     Dosage: 60 U
     Route: 058
     Dates: start: 20130101
  4. APIDRA [Suspect]
     Dosage: UNKNOWN
     Route: 058
  5. JANUVIA [Suspect]
     Indication: DIABETES MELLITUS
     Dosage: UNKNOWN
     Route: 065
     Dates: start: 20130101, end: 20131014
  6. RAMIPRIL [Concomitant]
     Indication: HYPERTENSION
     Dosage: 10 MG
     Route: 065
  7. IRBESARTAN [Concomitant]
     Indication: HYPERTENSION
     Dosage: 300 MG
     Route: 065
  8. GLUCOBAY [Concomitant]
     Indication: DIABETES MELLITUS
     Dosage: UNKNOWN
     Route: 065
  9. COUMADIN                           /00014802/ [Concomitant]
     Indication: DEEP VEIN THROMBOSIS
     Dosage: 5 MG
     Route: 065
  10. CRESTOR [Concomitant]
     Indication: OBESITY
     Dosage: UNKNOWN
     Route: 065
  11. ESKIM [Concomitant]
     Dosage: 2 TAB, QD (1000 MG TABLET)
     Route: 065

REACTIONS (3)
  - Chest injury [Recovered/Resolved]
  - Syncope [Recovered/Resolved]
  - Hypoglycaemia [Recovered/Resolved]
